FAERS Safety Report 22052613 (Version 2)
Quarter: 2023Q2

REPORT INFORMATION
  Report Type: Other
  Country: GB (occurrence: GB)
  Receive Date: 20230302
  Receipt Date: 20230516
  Transmission Date: 20230721
  Serious: Yes (Other)
  Sender: FDA-Public Use
  Company Number: GB-MHRA-MED-202302161025065090-GLYKD

PATIENT

DRUGS (2)
  1. MONTELUKAST SODIUM [Suspect]
     Active Substance: MONTELUKAST SODIUM
     Indication: Asthma
     Dosage: 4 MILLIGRAM
     Route: 065
  2. MONTELUKAST SODIUM [Suspect]
     Active Substance: MONTELUKAST SODIUM
     Dosage: 5 MILLIGRAM, HS (ONCE A DAY AT NIGHT)
     Route: 065
     Dates: start: 20210728, end: 20230206

REACTIONS (7)
  - Personality change [Recovering/Resolving]
  - Abnormal behaviour [Recovering/Resolving]
  - Medication error [Unknown]
  - Anxiety [Recovering/Resolving]
  - Depressed mood [Recovering/Resolving]
  - Aggression [Recovering/Resolving]
  - Anger [Unknown]

NARRATIVE: CASE EVENT DATE: 20210731
